FAERS Safety Report 21909528 (Version 1)
Quarter: 2023Q1

REPORT INFORMATION
  Report Type: Spontaneous
  Country: US (occurrence: None)
  Receive Date: 20230125
  Receipt Date: 20230125
  Transmission Date: 20230417
  Serious: Yes (Hospitalization)
  Sender: FDA-Public Use
  Company Number: None

PATIENT
  Age: 73 Year
  Sex: Female
  Weight: 71.85 kg

DRUGS (2)
  1. GEMCITABINE HYDROCHLORIDE [Suspect]
     Active Substance: GEMCITABINE HYDROCHLORIDE
     Dates: start: 20221221, end: 20221221
  2. PACLITAXEL [Suspect]
     Active Substance: PACLITAXEL
     Dates: end: 20221221

REACTIONS (5)
  - Abdominal pain [None]
  - Vomiting [None]
  - Hyponatraemia [None]
  - Dehydration [None]
  - Hypophagia [None]

NARRATIVE: CASE EVENT DATE: 20221228
